APPROVED DRUG PRODUCT: BENZTROPINE MESYLATE
Active Ingredient: BENZTROPINE MESYLATE
Strength: 1MG
Dosage Form/Route: TABLET;ORAL
Application: A204713 | Product #002 | TE Code: AA
Applicant: NUVO PHARMACEUTICAL INC
Approved: Apr 14, 2015 | RLD: No | RS: Yes | Type: RX